FAERS Safety Report 6645625 (Version 5)
Quarter: 2016Q1

REPORT INFORMATION
  Report Type: Spontaneous
  Country: JP (occurrence: JP)
  Receive Date: 20080521
  Receipt Date: 20160114
  Transmission Date: 20160526
  Serious: Yes (Congenital Anomaly, Other)
  Sender: FDA-Public Use
  Company Number: JP-BRISTOL-MYERS SQUIBB COMPANY-14196521

PATIENT
  Age: 0 Day
  Sex: Male

DRUGS (5)
  1. DEPAS [Concomitant]
     Active Substance: ETIZOLAM
     Indication: PRODUCT USED FOR UNKNOWN INDICATION
     Dosage: UNK
     Route: 064
     Dates: start: 20040709, end: 20070805
  2. CHLORPROMAZINE HCL [Concomitant]
     Active Substance: CHLORPROMAZINE HYDROCHLORIDE
     Indication: PRODUCT USED FOR UNKNOWN INDICATION
     Dosage: UNK
     Route: 064
  3. ETIZOLAM [Concomitant]
     Active Substance: ETIZOLAM
     Indication: PRODUCT USED FOR UNKNOWN INDICATION
     Dosage: UNK
     Route: 064
     Dates: start: 20070806, end: 20080310
  4. ABILIFY [Suspect]
     Active Substance: ARIPIPRAZOLE
     Indication: PRODUCT USED FOR UNKNOWN INDICATION
     Dosage: 6 MG, QD
     Route: 064
     Dates: start: 20070601, end: 20080310
  5. RISPERDAL [Concomitant]
     Active Substance: RISPERIDONE
     Indication: PRODUCT USED FOR UNKNOWN INDICATION
     Dosage: UNK
     Route: 064
     Dates: start: 20071001, end: 20080310

REACTIONS (3)
  - Cardiac valve disease [Unknown]
  - Foetal exposure during pregnancy [Unknown]
  - Ventricular septal defect [Unknown]

NARRATIVE: CASE EVENT DATE: 20080310
